FAERS Safety Report 9259344 (Version 2)
Quarter: 2013Q2

REPORT INFORMATION
  Report Type: Report from Study
  Country: US (occurrence: US)
  Receive Date: 20130427
  Receipt Date: 20130603
  Transmission Date: 20140414
  Serious: Yes (Other)
  Sender: FDA-Public Use
  Company Number: US-ROCHE-1219063

PATIENT
  Age: 70 Year
  Sex: Male
  Weight: 113.5 kg

DRUGS (2)
  1. AVASTIN [Suspect]
     Indication: COLORECTAL CANCER METASTATIC
     Route: 042
     Dates: start: 20130301
  2. 5-FU [Concomitant]
     Indication: COLORECTAL CANCER METASTATIC
     Route: 042

REACTIONS (5)
  - Cataract [Recovered/Resolved]
  - Epistaxis [Unknown]
  - Feeling abnormal [Not Recovered/Not Resolved]
  - Visual acuity reduced [Not Recovered/Not Resolved]
  - Neuropathy peripheral [Not Recovered/Not Resolved]
